FAERS Safety Report 13268676 (Version 1)
Quarter: 2017Q1

REPORT INFORMATION
  Report Type: Spontaneous
  Country: US (occurrence: US)
  Receive Date: 20170224
  Receipt Date: 20170224
  Transmission Date: 20170428
  Serious: Yes (Other)
  Sender: FDA-Public Use
  Company Number: None

PATIENT
  Age: 40 Year
  Sex: Female
  Weight: 77.4 kg

DRUGS (11)
  1. FOLIC ACID. [Concomitant]
     Active Substance: FOLIC ACID
  2. MULTIVITAMIN [Concomitant]
     Active Substance: VITAMINS
  3. CANE [Concomitant]
  4. MOBIC [Concomitant]
     Active Substance: MELOXICAM
  5. BRACE [Concomitant]
  6. ELMIRON [Concomitant]
     Active Substance: PENTOSAN POLYSULFATE SODIUM
  7. AVONEX [Suspect]
     Active Substance: INTERFERON BETA-1A
     Indication: MULTIPLE SCLEROSIS
     Dosage: 1 INJECTION ONCE WEEKLY INJECTED OUTER THIGH?
     Dates: start: 20161230, end: 20170219
  8. LIPITOR [Concomitant]
     Active Substance: ATORVASTATIN CALCIUM
  9. PROPRANOLOL [Concomitant]
     Active Substance: PROPRANOLOL HYDROCHLORIDE
  10. BIOTIN [Concomitant]
     Active Substance: BIOTIN
  11. HAIR LA VIE [Concomitant]

REACTIONS (6)
  - Hemiparesis [None]
  - Gait disturbance [None]
  - Urinary incontinence [None]
  - Hypoaesthesia [None]
  - Fall [None]
  - Musculoskeletal stiffness [None]

NARRATIVE: CASE EVENT DATE: 20170202
